FAERS Safety Report 12755857 (Version 2)
Quarter: 2016Q4

REPORT INFORMATION
  Report Type: Report from Study
  Country: None (occurrence: ES)
  Receive Date: 20160916
  Receipt Date: 20161219
  Transmission Date: 20170207
  Serious: Yes (Hospitalization, Other)
  Sender: FDA-Public Use
  Company Number: ES-ABBVIE-16P-144-1730288-00

PATIENT
  Age: 65 Year
  Sex: Female

DRUGS (1)
  1. DUODOPA [Suspect]
     Active Substance: CARBIDOPA\LEVODOPA
     Indication: PARKINSON^S DISEASE
     Dosage: MORNING DOSE: 8 ML, CONTINUOUS DOSE: 2.5 ML/H, EXTRA DOSE: 1 ML
     Route: 050
     Dates: start: 20160224

REACTIONS (5)
  - On and off phenomenon [Recovering/Resolving]
  - Device dislocation [Recovered/Resolved]
  - Hip arthroplasty [Unknown]
  - Urinary tract infection [Recovered/Resolved]
  - On and off phenomenon [Unknown]

NARRATIVE: CASE EVENT DATE: 2016
